FAERS Safety Report 7423463-6 (Version None)
Quarter: 2011Q2

REPORT INFORMATION
  Report Type: 
  Country: None (occurrence: None)
  Receive Date: 20110419
  Receipt Date: 20110407
  Transmission Date: 20111010
  Serious: Yes (Other)
  Sender: FDA-Public Use
  Company Number: DE-ROCHE-771496

PATIENT
  Sex: Male

DRUGS (3)
  1. SANDIMMUNE [Concomitant]
     Indication: RENAL TRANSPLANT
     Dates: start: 20040101
  2. CELLCEPT [Suspect]
     Indication: RENAL TRANSPLANT
     Route: 048
     Dates: start: 20040101
  3. DECORTIN [Concomitant]
     Indication: RENAL TRANSPLANT
     Dates: start: 20040101

REACTIONS (3)
  - ANEURYSM [None]
  - AORTIC DISSECTION [None]
  - CROHN'S DISEASE [None]
